FAERS Safety Report 8932520 (Version 1)
Quarter: 2012Q4

REPORT INFORMATION
  Report Type: Spontaneous
  Country: US (occurrence: None)
  Receive Date: 20121121
  Receipt Date: 20121121
  Transmission Date: 20130627
  Serious: Yes (Hospitalization, Disabling)
  Sender: FDA-Public Use
  Company Number: None

PATIENT
  Age: 52 Year
  Sex: Female
  Weight: 90.72 kg

DRUGS (1)
  1. LISINOPRIL [Suspect]
     Indication: BLOOD PRESSURE
     Dates: start: 20120626, end: 201208

REACTIONS (4)
  - Pharyngeal oedema [None]
  - Lip swelling [None]
  - Dyspnoea [None]
  - Feeling abnormal [None]
